FAERS Safety Report 24601974 (Version 2)
Quarter: 2025Q3

REPORT INFORMATION
  Report Type: Spontaneous
  Country: JP (occurrence: JP)
  Receive Date: 20241111
  Receipt Date: 20250820
  Transmission Date: 20251020
  Serious: Yes (Hospitalization, Other)
  Sender: GLAXOSMITHKLINE
  Company Number: JP-GSK-JP2024JPN137696

PATIENT
  Sex: Female

DRUGS (1)
  1. VALTREX [Suspect]
     Active Substance: VALACYCLOVIR HYDROCHLORIDE
     Indication: Herpes zoster
     Dosage: 1000 MG, TID

REACTIONS (9)
  - Toxic encephalopathy [Unknown]
  - Hallucination [Unknown]
  - Altered state of consciousness [Recovered/Resolved]
  - Chronic kidney disease [Recovered/Resolved]
  - Renal impairment [Recovered/Resolved]
  - Abnormal behaviour [Unknown]
  - Muscular weakness [Unknown]
  - Scab [Unknown]
  - Blister [Unknown]
